FAERS Safety Report 5336019-6 (Version None)
Quarter: 2007Q2

REPORT INFORMATION
  Report Type: 
  Country: None (occurrence: None)
  Receive Date: 20070302
  Receipt Date: 20061208
  Transmission Date: 20071010
  Serious: Yes (Death)
  Sender: FDA-Public Use
  Company Number: PHEH2006US14939

PATIENT
  Age: 76 Year
  Sex: Female

DRUGS (18)
  1. EXJADE [Suspect]
     Indication: IRON OVERLOAD
     Dosage: 1000 MG, QD
     Dates: start: 20060711, end: 20061124
  2. ALBUTEROL [Concomitant]
  3. COREG [Concomitant]
  4. LEVOXYL [Concomitant]
  5. ENALAPRIL (ENALAPRIL) [Concomitant]
  6. SPIRONOLACTONE [Concomitant]
  7. SPIRIVA [Concomitant]
  8. FUROSEMIDE [Concomitant]
  9. ADVAIR DISKUS 100/50 [Concomitant]
  10. ASPIRIN [Concomitant]
  11. PROTONIX [Concomitant]
  12. SOTALOL HCL [Concomitant]
  13. TEMAZEPAM [Concomitant]
  14. HYDROCODONE (HYDROCODONE) [Concomitant]
  15. PLAVIX [Concomitant]
  16. POTASSIUM (POTASSIUM) [Concomitant]
  17. CARAFATE [Concomitant]
  18. REGLAN [Concomitant]

REACTIONS (1)
  - MYELODYSPLASTIC SYNDROME [None]
